FAERS Safety Report 6468135-X (Version None)
Quarter: 2009Q4

REPORT INFORMATION
  Report Type: 
  Country: None (occurrence: None)
  Receive Date: 20091202
  Receipt Date: 20091127
  Transmission Date: 20100525
  Serious: Yes (Hospitalization)
  Sender: FDA-Public Use
  Company Number: FR-MERCK-0911FRA00101

PATIENT
  Age: 96 Year
  Sex: Female

DRUGS (6)
  1. NOROXIN [Suspect]
     Indication: URINARY TRACT INFECTION
     Route: 048
     Dates: start: 20090322, end: 20090330
  2. ENOXAPARIN SODIUM [Suspect]
     Route: 058
     Dates: start: 20090323, end: 20090328
  3. ASPIRIN LYSINE [Suspect]
     Route: 048
     Dates: end: 20090328
  4. FLECAINIDE ACETATE [Concomitant]
     Route: 048
  5. TRIMETAZIDINE HYDROCHLORIDE [Concomitant]
     Route: 048
  6. NICARDIPINE HYDROCHLORIDE [Concomitant]
     Route: 048

REACTIONS (2)
  - MELAENA [None]
  - RECTAL HAEMORRHAGE [None]
